FAERS Safety Report 7246432-8 (Version None)
Quarter: 2011Q1

REPORT INFORMATION
  Report Type: 
  Country: None (occurrence: None)
  Receive Date: 20110126
  Receipt Date: 20101124
  Transmission Date: 20110831
  Serious: Yes (Hospitalization)
  Sender: FDA-Public Use
  Company Number: JP-AMGEN-JPNNI2010007157

PATIENT
  Age: 65 Year
  Sex: Male

DRUGS (17)
  1. BLOPRESS [Concomitant]
     Dosage: 8 MG, QD
     Route: 048
  2. ALOSITOL [Concomitant]
     Dosage: 60 MG, QD
     Route: 048
  3. LIPOVAS                            /00499301/ [Concomitant]
     Dosage: 5 MG, QD
     Route: 048
  4. PURSENNID                          /00142207/ [Concomitant]
     Dosage: 36 MG, QD
     Route: 048
  5. ALOSENN                            /00476901/ [Concomitant]
     Dosage: 1 G, QD
     Route: 048
  6. CINACALCET HYDROCHLORIDE [Suspect]
     Indication: HYPERPARATHYROIDISM SECONDARY
     Dosage: 25 MG, QD
     Route: 048
     Dates: start: 20080604
  7. ALFAROL [Concomitant]
     Dosage: 0.5 A?G, QD
     Route: 048
  8. CALBLOCK [Concomitant]
     Dosage: 16 MG, QD
     Route: 048
  9. NORVASC [Concomitant]
     Dosage: 10 MG, QD
     Route: 048
  10. RENAGEL                            /01459901/ [Concomitant]
     Dosage: 2250 MG, QD
     Route: 048
     Dates: start: 20080702
  11. TANKARU [Concomitant]
     Dosage: 3000 MG, QD
     Route: 048
     Dates: start: 20080806
  12. LAXOBERON [Concomitant]
     Dosage: 20 ML, UNK
  13. CELTEC [Concomitant]
     Dosage: 30 MG, QD
     Route: 048
  14. POLARAMINE                         /00043702/ [Concomitant]
     Dosage: 4 MG, QD
     Route: 048
  15. FERROMIA                           /00023516/ [Concomitant]
     Dosage: 100 MG, QD
     Route: 048
  16. EPOGIN [Concomitant]
     Dosage: 12000 IU, Q2WK
     Route: 058
     Dates: start: 20080702
  17. DETANTOL [Concomitant]
     Dosage: 3 MG, QD
     Route: 048

REACTIONS (1)
  - GASTRITIS HAEMORRHAGIC [None]
